FAERS Safety Report 4286254-3 (Version None)
Quarter: 2004Q1

REPORT INFORMATION
  Report Type: 
  Country: None (occurrence: None)
  Receive Date: 20040113
  Receipt Date: 20030923
  Transmission Date: 20041129
  Serious: Yes (Hospitalization)
  Sender: FDA-Public Use
  Company Number: PHEH2003US08658

PATIENT
  Age: 3 Year
  Sex: Male

DRUGS (4)
  1. SANDIMMUNE (CICLOSPORIN) SOLUTION [Suspect]
     Indication: EVAN'S SYNDROME
     Dosage: 0.9 ML, BID, ORAL
     Route: 048
     Dates: start: 20021001
  2. PREDNISONE [Concomitant]
  3. HYDRALAZINE HCL [Concomitant]
  4. ZANTAC [Concomitant]

REACTIONS (1)
  - CONVULSION [None]
